FAERS Safety Report 4883430-3 (Version None)
Quarter: 2006Q1

REPORT INFORMATION
  Report Type: 
  Country: None (occurrence: None)
  Receive Date: 20060117
  Receipt Date: 20060117
  Transmission Date: 20060701
  Serious: Yes (Hospitalization)
  Sender: FDA-Public Use
  Company Number: None

PATIENT
  Age: 65 Year
  Sex: Female
  Weight: 102.0593 kg

DRUGS (1)
  1. GENTAMICIN [Suspect]
     Indication: STAPHYLOCOCCAL INFECTION
     Dosage: DAILY
     Dates: start: 20040201, end: 20040312

REACTIONS (7)
  - BALANCE DISORDER [None]
  - BLOOD POTASSIUM DECREASED [None]
  - DIZZINESS [None]
  - INJURY [None]
  - INNER EAR DISORDER [None]
  - LABORATORY TEST ABNORMAL [None]
  - RENAL DISORDER [None]
